FAERS Safety Report 13244296 (Version 1)
Quarter: 2017Q1

REPORT INFORMATION
  Report Type: Spontaneous
  Country: US (occurrence: US)
  Receive Date: 20170217
  Receipt Date: 20170217
  Transmission Date: 20170428
  Serious: No
  Sender: FDA-Public Use
  Company Number: None

PATIENT

DRUGS (1)
  1. FENTANYL. [Suspect]
     Active Substance: FENTANYL
     Dosage: DOSAGE FORM - INJECTABLE?ADM ROUTE - INJECTION?TYPE - VIAL?SIZE 2 ML?SIZE 2 ML

REACTIONS (1)
  - Product tampering [None]
